FAERS Safety Report 4450117-0 (Version None)
Quarter: 2004Q3

REPORT INFORMATION
  Report Type: 
  Country: None (occurrence: None)
  Receive Date: 20040802
  Receipt Date: 20030925
  Transmission Date: 20050211
  Serious: Yes (Other)
  Sender: FDA-Public Use
  Company Number: US-SHR-03-015161

PATIENT
  Age: 40 Year
  Sex: Male
  Weight: 106.1 kg

DRUGS (1)
  1. MAGNEVIST [Suspect]
     Indication: NUCLEAR MAGNETIC RESONANCE IMAGING
     Dosage: 20 ML, 1 DOSE, INTRAVENOUS
     Route: 042
     Dates: start: 20030925, end: 20030925

REACTIONS (4)
  - COUGH [None]
  - ERYTHEMA [None]
  - URTICARIA [None]
  - WHEEZING [None]
